FAERS Safety Report 6923861-0 (Version None)
Quarter: 2010Q3

REPORT INFORMATION
  Report Type: 
  Country: None (occurrence: None)
  Receive Date: 20100813
  Receipt Date: 20091214
  Transmission Date: 20110219
  Serious: Yes (Hospitalization)
  Sender: FDA-Public Use
  Company Number: US-BRISTOL-MYERS SQUIBB COMPANY-14886758

PATIENT
  Age: 50 Year
  Sex: Male
  Weight: 95 kg

DRUGS (7)
  1. REYATAZ [Suspect]
     Indication: HIV INFECTION
     Dosage: THERAPY HOLD FOR 2 WEEKS
     Route: 048
     Dates: start: 20030901, end: 20090101
  2. ZIAGEN [Concomitant]
     Dosage: 1DF=600 UNIT NOS
  3. NORVIR [Concomitant]
     Dosage: 1 DF=100 UNIT NOS
  4. HYDROCHLOROTHIAZIDE [Concomitant]
     Indication: HYPERTENSION
  5. CELEXA [Concomitant]
  6. WELLBUTRIN XL [Concomitant]
     Dosage: 1 DF=300X2
  7. VIREAD [Concomitant]
     Dosage: 1DF=300 UNIT NOS

REACTIONS (1)
  - NEPHROLITHIASIS [None]
